FAERS Safety Report 21908597 (Version 1)
Quarter: 2023Q1

REPORT INFORMATION
  Report Type: Report from Study
  Country: US (occurrence: None)
  Receive Date: 20230125
  Receipt Date: 20230125
  Transmission Date: 20230418
  Serious: Yes (Hospitalization)
  Sender: FDA-Public Use
  Company Number: US-Eisai Medical Research-EC-2023-132418

PATIENT
  Age: 61 Year
  Sex: Male

DRUGS (2)
  1. LENVATINIB [Suspect]
     Active Substance: LENVATINIB
     Indication: Adenocarcinoma
     Dosage: UNKNOWN DOSE AND FREQUENCY
     Route: 048
     Dates: start: 20220701, end: 20220906
  2. PEMBROLIZUMAB [Suspect]
     Active Substance: PEMBROLIZUMAB
     Indication: Adenocarcinoma
     Dosage: UNKNOWN DOSE AND FREQUENCY
     Route: 042
     Dates: start: 20220701, end: 20220902

REACTIONS (2)
  - Fatigue [Unknown]
  - Colitis [Unknown]

NARRATIVE: CASE EVENT DATE: 20220913
